FAERS Safety Report 24739166 (Version 1)
Quarter: 2024Q4

REPORT INFORMATION
  Report Type: Spontaneous
  Country: US (occurrence: US)
  Receive Date: 20241216
  Receipt Date: 20241216
  Transmission Date: 20250115
  Serious: Yes (Other)
  Sender: INCYTE
  Company Number: US-002147023-NVSC2024US235988

PATIENT

DRUGS (8)
  1. JAKAFI [Suspect]
     Active Substance: RUXOLITINIB
     Indication: Immunosuppressant drug therapy
     Dosage: 10 MG, QD RECEIVED DAILY UNTIL BEVACIZUMAB INFUSION WAS CONTINUED, 9 CYCLES
     Route: 048
  2. JAKAFI [Suspect]
     Active Substance: RUXOLITINIB
     Indication: Adrenoleukodystrophy
  3. JAKAFI [Suspect]
     Active Substance: RUXOLITINIB
     Indication: Cerebral disorder
  4. BEVACIZUMAB [Suspect]
     Active Substance: BEVACIZUMAB
     Indication: Cerebral disorder
     Dosage: 10 MG/M2, Q2W RECEIVED EVERY 2 WEEKS, 9 CYCLES INFUSION
     Route: 042
  5. BEVACIZUMAB [Suspect]
     Active Substance: BEVACIZUMAB
     Indication: Adrenoleukodystrophy
  6. DEXAMETHASONE [Suspect]
     Active Substance: DEXAMETHASONE
     Indication: Cerebral disorder
     Dosage: 10 MG, QD RECEIVED DAILY FOR A DURATION OF 5 DAYS?ON THE WEEK OF BEVACIZUMAB INFUSION, 9 CYCLES
     Route: 048
  7. DEXAMETHASONE [Suspect]
     Active Substance: DEXAMETHASONE
     Indication: Adrenoleukodystrophy
  8. DEXAMETHASONE [Suspect]
     Active Substance: DEXAMETHASONE
     Indication: Immunosuppressant drug therapy

REACTIONS (2)
  - Disease progression [Unknown]
  - Drug ineffective for unapproved indication [Unknown]
